FAERS Safety Report 4773068-0 (Version None)
Quarter: 2005Q3

REPORT INFORMATION
  Report Type: 
  Country: None (occurrence: None)
  Receive Date: 20050919
  Receipt Date: 20050908
  Transmission Date: 20060218
  Serious: Yes (Hospitalization)
  Sender: FDA-Public Use
  Company Number: FR-BRISTOL-MYERS SQUIBB COMPANY-13103668

PATIENT
  Age: 53 Year
  Sex: Male
  Weight: 59 kg

DRUGS (3)
  1. ABILIFY [Suspect]
     Indication: SCHIZOPHRENIA
     Route: 048
     Dates: start: 20050520, end: 20050823
  2. URBANYL [Concomitant]
     Indication: ANXIETY
     Dates: start: 19970603, end: 20050823
  3. FORLAX [Concomitant]
     Indication: CONSTIPATION
     Dates: start: 20041102

REACTIONS (3)
  - DELUSION [None]
  - ILLUSION [None]
  - INSOMNIA [None]
